FAERS Safety Report 9949348 (Version 1)
Quarter: 2014Q1

REPORT INFORMATION
  Report Type: Spontaneous
  Country: GB (occurrence: GB)
  Receive Date: 20140304
  Receipt Date: 20140304
  Transmission Date: 20141002
  Serious: Yes (Hospitalization)
  Sender: FDA-Public Use
  Company Number: GB-TEVA-466198ISR

PATIENT
  Age: 70 Year
  Sex: Male

DRUGS (2)
  1. SIMVASTATIN [Suspect]
     Dosage: 40MG
     Route: 065
  2. METHOTREXATE [Concomitant]
     Indication: PSORIASIS
     Route: 065

REACTIONS (2)
  - Megacolon [Recovering/Resolving]
  - Volvulus [Recovering/Resolving]
